FAERS Safety Report 9455397 (Version 4)
Quarter: 2013Q3

REPORT INFORMATION
  Report Type: Spontaneous
  Country: JP (occurrence: JP)
  Receive Date: 20130813
  Receipt Date: 20130906
  Transmission Date: 20140515
  Serious: Yes (Death, Hospitalization, Other)
  Sender: FDA-Public Use
  Company Number: PHHY2013JP065034

PATIENT
  Age: 81 Year
  Sex: Male
  Weight: 58 kg

DRUGS (7)
  1. ZOMETA [Suspect]
     Indication: HYPERCALCAEMIA
     Dosage: 3.3 MG, UNK
     Route: 041
     Dates: start: 20130522
  2. ZOMETA [Suspect]
     Dosage: 3.3 MG, UNK
     Route: 041
     Dates: start: 20130604
  3. ZOMETA [Suspect]
     Dosage: 3.3 MG, UNK
     Route: 041
     Dates: start: 20130611, end: 20130611
  4. ZOMETA [Suspect]
     Dosage: 4 MG, UNK
     Route: 041
     Dates: start: 20130618, end: 20130702
  5. PREDONINE//PREDNISOLONE SODIUM SUCCINATE [Concomitant]
     Indication: HYPERCALCAEMIA
     Dosage: 20 MG, UNK
     Route: 042
     Dates: start: 20130621
  6. PREDONINE//PREDNISOLONE SODIUM SUCCINATE [Concomitant]
     Dosage: 20 MG, DAILY
     Route: 042
     Dates: start: 20130622
  7. PREDONINE//PREDNISOLONE SODIUM SUCCINATE [Concomitant]
     Dosage: 10 MG, DAILY
     Route: 042

REACTIONS (6)
  - Hypercalcaemia [Fatal]
  - Neoplasm recurrence [Fatal]
  - General physical health deterioration [Unknown]
  - Depressed level of consciousness [Unknown]
  - Coma [Unknown]
  - Drug ineffective [Unknown]
